FAERS Safety Report 10155682 (Version 1)
Quarter: 2014Q2

REPORT INFORMATION
  Report Type: Spontaneous
  Country: CO (occurrence: CO)
  Receive Date: 20140506
  Receipt Date: 20140506
  Transmission Date: 20141212
  Serious: Yes (Other)
  Sender: FDA-Public Use
  Company Number: CO-VERTEX PHARMACEUTICALS INC-2014-002214

PATIENT
  Age: 59 Year
  Sex: Female
  Weight: 72 kg

DRUGS (3)
  1. INCIVO [Suspect]
     Indication: HEPATITIS C
     Route: 048
     Dates: start: 20140415, end: 20140424
  2. INTERFERON [Concomitant]
     Indication: HEPATITIS C
     Dosage: DOSAGE FORM: AMPOULES
     Route: 058
  3. RIBAVIRIN [Concomitant]
     Indication: HEPATITIS C
     Dosage: 1 DF, UNK
     Route: 048

REACTIONS (3)
  - Hypersensitivity [Unknown]
  - Haemorrhoids [Unknown]
  - Proctalgia [Unknown]
